FAERS Safety Report 9999818 (Version 2)
Quarter: 2014Q1

REPORT INFORMATION
  Report Type: Spontaneous
  Country: US (occurrence: US)
  Receive Date: 20140312
  Receipt Date: 20140312
  Transmission Date: 20141002
  Serious: Yes (Other)
  Sender: FDA-Public Use
  Company Number: US-PFIZER INC-2013128290

PATIENT
  Age: 16 Year
  Sex: Male
  Weight: 74.38 kg

DRUGS (1)
  1. ELELYSO [Suspect]
     Indication: GAUCHER^S DISEASE
     Dosage: 4400 IU, CYCLIC (Q 2 WEEKS)
     Route: 042
     Dates: start: 20130416

REACTIONS (3)
  - Immune thrombocytopenic purpura [Unknown]
  - Thrombocytopenia [Unknown]
  - Off label use [Unknown]
